FAERS Safety Report 25589181 (Version 1)
Quarter: 2025Q3

REPORT INFORMATION
  Report Type: Spontaneous
  Country: EU (occurrence: EU)
  Receive Date: 20250722
  Receipt Date: 20250722
  Transmission Date: 20251020
  Serious: Yes (Other)
  Sender: CELLTRION
  Company Number: EU-GLAXOSMITHKLINE INC-SE2024145891

PATIENT

DRUGS (4)
  1. RITUXIMAB [Suspect]
     Active Substance: RITUXIMAB
     Indication: Systemic lupus erythematosus
  2. BENLYSTA [Suspect]
     Active Substance: BELIMUMAB
     Indication: Systemic lupus erythematosus
  3. CORTISONE [Suspect]
     Active Substance: CORTISONE
     Indication: Systemic lupus erythematosus
  4. HYDROXYCHLOROQUINE [Suspect]
     Active Substance: HYDROXYCHLOROQUINE
     Indication: Systemic lupus erythematosus

REACTIONS (4)
  - Eclampsia [Unknown]
  - Abdominal pain upper [Unknown]
  - Exposure during pregnancy [Unknown]
  - Intentional product use issue [Unknown]
